FAERS Safety Report 10149963 (Version 2)
Quarter: 2014Q2

REPORT INFORMATION
  Report Type: Spontaneous
  Country: US (occurrence: US)
  Receive Date: 20140502
  Receipt Date: 20140630
  Transmission Date: 20141212
  Serious: No
  Sender: FDA-Public Use
  Company Number: US-009507513-1405USA000403

PATIENT
  Age: 20 Year
  Sex: Female
  Weight: 89.8 kg

DRUGS (2)
  1. NEXPLANON [Suspect]
     Dosage: 2ND IMPLANT
     Route: 059
     Dates: start: 20140429, end: 20140429
  2. NEXPLANON [Suspect]
     Dosage: 1ST IMPLANT
     Route: 059
     Dates: start: 20100307, end: 20130307

REACTIONS (3)
  - Device difficult to use [Recovered/Resolved]
  - Device deployment issue [Recovered/Resolved]
  - No adverse event [Unknown]
